FAERS Safety Report 5100508-X (Version None)
Quarter: 2006Q3

REPORT INFORMATION
  Report Type: 
  Country: None (occurrence: None)
  Receive Date: 20060907
  Receipt Date: 20060907
  Transmission Date: 20061208
  Serious: Yes (Hospitalization)
  Sender: FDA-Public Use
  Company Number: None

PATIENT
  Age: 42 Year
  Sex: Male
  Weight: 72.5755 kg

DRUGS (9)
  1. TRILEPTAL [Suspect]
     Indication: MOOD ALTERED
     Dosage: 600 MG BID 047
     Dates: start: 20050303, end: 20050519
  2. TRILEPTAL [Suspect]
     Indication: NEURALGIA
     Dosage: 600 MG BID 047
     Dates: start: 20050303, end: 20050519
  3. VALTREX [Concomitant]
  4. DURAGESIC-100 [Concomitant]
  5. OXY IR [Concomitant]
  6. ASPIRIN [Concomitant]
  7. GLUCOS/CHOND [Concomitant]
  8. VIT B COMPLEX [Concomitant]
  9. PROZAC [Concomitant]

REACTIONS (1)
  - HYPONATRAEMIA [None]
